FAERS Safety Report 8414428-6 (Version None)
Quarter: 2012Q2

REPORT INFORMATION
  Report Type: 
  Country: None (occurrence: None)
  Receive Date: 20120605
  Receipt Date: 20120521
  Transmission Date: 20120825
  Serious: Yes (Other)
  Sender: FDA-Public Use
  Company Number: CHPA2012US005504

PATIENT
  Sex: Male
  Weight: 82.54 kg

DRUGS (2)
  1. PROBIOTICS [Concomitant]
     Dosage: UNK, UNK
  2. EXCEDRIN (MIGRAINE) [Suspect]
     Indication: MIGRAINE
     Dosage: UNK, UNK
     Route: 048
     Dates: start: 20100101, end: 20100801

REACTIONS (23)
  - SPECIFIC GRAVITY URINE ABNORMAL [None]
  - RED BLOOD CELLS URINE [None]
  - PAIN [None]
  - CONSTIPATION [None]
  - DECREASED APPETITE [None]
  - LYMPHOCYTE MORPHOLOGY ABNORMAL [None]
  - SENSATION OF PRESSURE [None]
  - ABDOMINAL DISTENSION [None]
  - COLITIS [None]
  - NODULE [None]
  - BLOOD UREA INCREASED [None]
  - GRANULOCYTES ABNORMAL [None]
  - BLOOD URINE PRESENT [None]
  - MALAISE [None]
  - CHANGE OF BOWEL HABIT [None]
  - NAUSEA [None]
  - ABDOMINAL PAIN [None]
  - RECTAL HAEMORRHAGE [None]
  - BLOOD GLUCOSE INCREASED [None]
  - HAEMATOCHEZIA [None]
  - FATIGUE [None]
  - PROTEIN URINE PRESENT [None]
  - URINE ANALYSIS ABNORMAL [None]
